FAERS Safety Report 18015039 (Version 1)
Quarter: 2020Q3

REPORT INFORMATION
  Report Type: Spontaneous
  Country: CZ (occurrence: CZ)
  Receive Date: 20200713
  Receipt Date: 20200713
  Transmission Date: 20201103
  Serious: Yes (Hospitalization, Other)
  Sender: FDA-Public Use
  Company Number: NVSC2020CZ195961

PATIENT
  Age: 11 Year
  Sex: Female

DRUGS (4)
  1. GENTAMICIN. [Suspect]
     Active Substance: GENTAMICIN
     Indication: ANTIBIOTIC THERAPY
  2. UNASYN [Concomitant]
     Active Substance: AMPICILLIN SODIUM\SULBACTAM SODIUM
     Indication: LYMPHADENITIS
     Dosage: UNK
     Route: 051
  3. UNASYN [Concomitant]
     Active Substance: AMPICILLIN SODIUM\SULBACTAM SODIUM
     Indication: ANTIBIOTIC THERAPY
  4. GENTAMICIN. [Suspect]
     Active Substance: GENTAMICIN
     Indication: LYMPHADENITIS
     Dosage: UNK
     Route: 051

REACTIONS (3)
  - Drug ineffective [Recovering/Resolving]
  - Klebsiella infection [Recovering/Resolving]
  - Product use in unapproved indication [Unknown]
